FAERS Safety Report 9769140 (Version 4)
Quarter: 2014Q1

REPORT INFORMATION
  Report Type: Spontaneous
  Country: US (occurrence: US)
  Receive Date: 20131218
  Receipt Date: 20140202
  Transmission Date: 20141002
  Serious: Yes (Hospitalization)
  Sender: FDA-Public Use
  Company Number: US-AMGEN-USASP2013087592

PATIENT
  Age: 87 Year
  Sex: Male
  Weight: 75.24 kg

DRUGS (3)
  1. NPLATE [Suspect]
     Indication: IMMUNE THROMBOCYTOPENIC PURPURA
     Dosage: 7 MUG/KG, UNK
     Route: 058
     Dates: start: 20130814
  2. PREDNISOLONE [Concomitant]
     Dosage: 1 MG, QD
     Route: 048
  3. DECADRON                           /00016001/ [Concomitant]
     Dosage: 40 MG, QD
     Route: 048
     Dates: start: 20131030

REACTIONS (2)
  - Platelet count decreased [Not Recovered/Not Resolved]
  - Drug ineffective [Unknown]
